FAERS Safety Report 10996987 (Version 1)
Quarter: 2015Q2

REPORT INFORMATION
  Report Type: Spontaneous
  Country: US (occurrence: None)
  Receive Date: 20150407
  Receipt Date: 20150407
  Transmission Date: 20150821
  Serious: Yes (Hospitalization, Disabling)
  Sender: FDA-Public Use
  Company Number: None

PATIENT
  Age: 57 Year
  Sex: Male
  Weight: 63.5 kg

DRUGS (2)
  1. AMLODIPINE- BENAZEPRIL [Suspect]
     Active Substance: AMLODIPINE BESYLATE\BENAZEPRIL HYDROCHLORIDE
     Indication: HYPERTENSION
     Dosage: 1 CAPSULE/DAY, ONCE DAILY, TAKEN BY MOUTH
     Route: 048
     Dates: start: 20150320
  2. VITAMIN B6 [Concomitant]
     Active Substance: PYRIDOXINE HYDROCHLORIDE

REACTIONS (6)
  - Multiple sclerosis [None]
  - Neuropathy peripheral [None]
  - Balance disorder [None]
  - Peripheral swelling [None]
  - Gait disturbance [None]
  - Central nervous system lesion [None]

NARRATIVE: CASE EVENT DATE: 20140903
